FAERS Safety Report 14923188 (Version 2)
Quarter: 2018Q3

REPORT INFORMATION
  Report Type: Spontaneous
  Country: IT (occurrence: IT)
  Receive Date: 20180522
  Receipt Date: 20180905
  Transmission Date: 20181010
  Serious: Yes (Other)
  Sender: FDA-Public Use
  Company Number: IT-TEVA-2018-IT-893081

PATIENT
  Age: 63 Year
  Sex: Female
  Weight: 160 kg

DRUGS (1)
  1. CLOZAPINE. [Suspect]
     Active Substance: CLOZAPINE
     Indication: PSYCHOTIC DISORDER
     Route: 048

REACTIONS (2)
  - Delusion [Recovering/Resolving]
  - Persecutory delusion [Recovering/Resolving]
